FAERS Safety Report 5050141-3 (Version None)
Quarter: 2006Q3

REPORT INFORMATION
  Report Type: 
  Country: None (occurrence: None)
  Receive Date: 20060706
  Receipt Date: 20060623
  Transmission Date: 20061208
  Serious: Yes (Other)
  Sender: FDA-Public Use
  Company Number: 2006077582

PATIENT
  Age: 84 Year
  Sex: Female

DRUGS (3)
  1. SUTENT [Suspect]
     Indication: RENAL CELL CARCINOMA STAGE UNSPECIFIED
     Dosage: 25 MG (25 MG, DAILY), ORAL
     Route: 048
     Dates: start: 20060317
  2. NUTRITIONAL SUPPLEMENT (GENERAL NUTRIENTS) [Concomitant]
  3. ANTIHYPERTENSIVES (ANTIHYPERTENSIVES) [Concomitant]

REACTIONS (15)
  - ABDOMINAL PAIN UPPER [None]
  - ANAL DISCOMFORT [None]
  - DYSGEUSIA [None]
  - ERYTHEMA [None]
  - FACIAL PAIN [None]
  - GENITAL PRURITUS FEMALE [None]
  - GLOSSODYNIA [None]
  - HYPERSOMNIA [None]
  - ORAL INTAKE REDUCED [None]
  - PRURITUS ANI [None]
  - RED BLOOD CELL COUNT ABNORMAL [None]
  - STOMATITIS [None]
  - VAGINAL BURNING SENSATION [None]
  - WEIGHT DECREASED [None]
  - WHITE BLOOD CELL COUNT ABNORMAL [None]
